FAERS Safety Report 5918980-1 (Version None)
Quarter: 2008Q4

REPORT INFORMATION
  Report Type: 
  Country: None (occurrence: None)
  Receive Date: 20081010
  Receipt Date: 20080926
  Transmission Date: 20090506
  Serious: Yes (Hospitalization)
  Sender: FDA-Public Use
  Company Number: 230002K08BRA

PATIENT
  Age: 49 Year
  Sex: Female

DRUGS (7)
  1. REBIF [Suspect]
     Dosage: 22 MCG
     Dates: start: 20020703, end: 20080912
  2. PRESSAT (ANLODIPIN [AMLODIPDIN]) (AMLODIPINE) [Concomitant]
  3. VASOPRIL [Concomitant]
  4. HIDRION (FUROSEMIDE, KCL) (FUROSEMIDE /00032601/) [Concomitant]
  5. PROPRANOLOL (PROPRANOLOL /00030001/) [Concomitant]
  6. PONDERA (PAROXETINE) (PAROXETINE) [Concomitant]
  7. OMEPRAZOLE [Concomitant]

REACTIONS (2)
  - NECK PAIN [None]
  - NO THERAPEUTIC RESPONSE [None]
